FAERS Safety Report 5939081-2 (Version None)
Quarter: 2008Q4

REPORT INFORMATION
  Report Type: 
  Country: None (occurrence: None)
  Receive Date: 20081103
  Receipt Date: 20081024
  Transmission Date: 20090506
  Serious: Yes (Other)
  Sender: FDA-Public Use
  Company Number: A0754115A

PATIENT
  Sex: Female

DRUGS (1)
  1. ZYBAN [Suspect]
     Route: 065

REACTIONS (13)
  - CONFUSIONAL STATE [None]
  - DEPRESSED LEVEL OF CONSCIOUSNESS [None]
  - DEPRESSION [None]
  - DISTURBANCE IN ATTENTION [None]
  - DRY MOUTH [None]
  - EUPHORIC MOOD [None]
  - FATIGUE [None]
  - FEAR [None]
  - FEELING ABNORMAL [None]
  - INSOMNIA [None]
  - PALPITATIONS [None]
  - PARANOIA [None]
  - SUICIDAL IDEATION [None]
